FAERS Safety Report 16084773 (Version 1)
Quarter: 2019Q1

REPORT INFORMATION
  Report Type: Spontaneous
  Country: US (occurrence: US)
  Receive Date: 20190318
  Receipt Date: 20190318
  Transmission Date: 20190418
  Serious: No
  Sender: FDA-Public Use
  Company Number: US-AVADEL SPECIALTY PHARMACEUTICALS, LLC-2019AVA00052

PATIENT
  Age: 81 Year
  Sex: Male
  Weight: 88.44 kg

DRUGS (5)
  1. ALFUZOSIN [Concomitant]
     Active Substance: ALFUZOSIN
  2. BUPROPION. [Concomitant]
     Active Substance: BUPROPION
  3. NOCTIVA [Suspect]
     Active Substance: DESMOPRESSIN ACETATE
     Indication: NOCTURIA
     Dosage: 1.66 ?G, 1X/DAY APPROXIMATELY 30 MINUTES BEFORE BEDTIME
     Route: 045
     Dates: start: 201811
  4. WARFARIN [Concomitant]
     Active Substance: WARFARIN
  5. AFRIN [Concomitant]
     Active Substance: OXYMETAZOLINE
     Dosage: AT NIGHT

REACTIONS (2)
  - Product preparation issue [Recovered/Resolved]
  - Rhinorrhoea [Not Recovered/Not Resolved]

NARRATIVE: CASE EVENT DATE: 201811
